FAERS Safety Report 8764918 (Version 1)
Quarter: 2012Q4

REPORT INFORMATION
  Report Type: 
  Country: US (occurrence: US)
  Receive Date: 20120902
  Receipt Date: 20120902
  Transmission Date: 20130627
  Serious: No
  Sender: FDA-Public Use
  Company Number: US-009507513-1208USA011603

PATIENT

DRUGS (6)
  1. PEGINTRON [Suspect]
     Indication: HEPATITIS C
     Dosage: UNK
     Dates: start: 2004
  2. PEGINTRON [Suspect]
     Dosage: UNK
     Dates: start: 2005
  3. PEGINTRON [Suspect]
     Dosage: UNK
     Dates: start: 20120810
  4. REBETOL [Suspect]
     Indication: HEPATITIS C
     Dosage: UNK
     Dates: start: 2004
  5. REBETOL [Suspect]
     Dosage: UNK
     Dates: start: 2005
  6. REBETOL [Suspect]
     Dosage: UNK
     Dates: start: 20120810

REACTIONS (1)
  - No therapeutic response [Unknown]
